FAERS Safety Report 5587137-9 (Version None)
Quarter: 2008Q1

REPORT INFORMATION
  Report Type: 
  Country: None (occurrence: None)
  Receive Date: 20080110
  Receipt Date: 20080102
  Transmission Date: 20080703
  Serious: Yes (Disabling)
  Sender: FDA-Public Use
  Company Number: AU-ASTRAZENECA-2007AP06682

PATIENT
  Age: 60 Year
  Sex: Female
  Weight: 107 kg

DRUGS (14)
  1. GENOX [Suspect]
     Indication: BREAST CANCER
     Dates: start: 20070701
  2. DUCENE [Concomitant]
     Indication: PANIC DISORDER
     Route: 048
  3. VYTORIN [Concomitant]
     Indication: BLOOD PRESSURE INCREASED
     Route: 048
  4. AVAPRO [Concomitant]
     Indication: BLOOD PRESSURE INCREASED
     Route: 048
  5. METFORMIN HCL [Concomitant]
     Indication: DIABETES MELLITUS
     Route: 048
  6. GLYADE [Concomitant]
     Indication: DIABETES MELLITUS
     Route: 048
  7. TALOHEXAL [Concomitant]
     Indication: DEPRESSION
     Route: 048
  8. MONODUR [Concomitant]
     Indication: BLOOD PRESSURE INCREASED
  9. MONODUR [Concomitant]
     Indication: HEART RATE IRREGULAR
  10. DIAFORMIN [Concomitant]
     Indication: DIABETES MELLITUS
     Route: 048
  11. ASTRIX [Concomitant]
     Indication: BLOOD DISORDER
  12. PROCHLORPERAZINE [Concomitant]
     Indication: NAUSEA
  13. PROTAPHANE INNOLET [Concomitant]
     Indication: DIABETES MELLITUS
     Dosage: 20 U AT NIGHT AND 25 IN THE MORNING
  14. PROTAPHANE INNOLET [Concomitant]
     Dosage: 20 U AT NIGHT AND 30 IN THE MORNING

REACTIONS (1)
  - BLOOD GLUCOSE ABNORMAL [None]
